FAERS Safety Report 17250916 (Version 1)
Quarter: 2019Q4

REPORT INFORMATION
  Report Type: Spontaneous
  Country: US (occurrence: US)
  Receive Date: 20191213
  Receipt Date: 20191213
  Transmission Date: 20200122
  Serious: Yes (Hospitalization)
  Sender: FDA-Public Use
  Company Number: None

PATIENT
  Age: 72 Year
  Sex: Male

DRUGS (2)
  1. CEPHALEXIN (CEPHALEXIN 500MG CAP) [Suspect]
     Active Substance: CEPHALEXIN
     Indication: POST PROCEDURAL INFECTION
     Route: 048
     Dates: start: 20191001, end: 20191010
  2. DOXYCYCLINE (DOXYCYCLINE HYCLATE 100MG TAB) [Suspect]
     Active Substance: DOXYCYCLINE HYCLATE
     Indication: SKIN INFECTION
     Route: 048
     Dates: start: 20191101, end: 20191110

REACTIONS (3)
  - Leukocytosis [None]
  - Clostridium test positive [None]
  - Diarrhoea [None]

NARRATIVE: CASE EVENT DATE: 20191125
